FAERS Safety Report 22088191 (Version 6)
Quarter: 2024Q2

REPORT INFORMATION
  Report Type: Spontaneous
  Country: US (occurrence: US)
  Receive Date: 20230313
  Receipt Date: 20240408
  Transmission Date: 20240715
  Serious: Yes (Other)
  Sender: FDA-Public Use
  Company Number: US-BRISTOL-MYERS SQUIBB COMPANY-2023-035572

PATIENT
  Age: 75 Year
  Sex: Female

DRUGS (3)
  1. POMALYST [Suspect]
     Active Substance: POMALIDOMIDE
     Indication: Plasma cell myeloma
     Dosage: FREQ: OTHER, FREQUENCY- DAILY
     Route: 048
     Dates: start: 202203
  2. POMALYST [Suspect]
     Active Substance: POMALIDOMIDE
     Dosage: DAILY FOR 21 DAYS
     Route: 048
  3. POMALYST [Suspect]
     Active Substance: POMALIDOMIDE
     Dosage: FREQUENCY: QD FOR 21 DAYS ON AND 7 DAYS OFF/DAILY FOR 21 ON 7 OFF
     Route: 048

REACTIONS (8)
  - Tremor [Unknown]
  - Hyperhidrosis [Unknown]
  - Fluid retention [Unknown]
  - Balance disorder [Unknown]
  - Gastrooesophageal reflux disease [Not Recovered/Not Resolved]
  - Nausea [Unknown]
  - Product availability issue [Unknown]
  - Neuralgia [Unknown]

NARRATIVE: CASE EVENT DATE: 20230309
